FAERS Safety Report 8224142-8 (Version None)
Quarter: 2012Q1

REPORT INFORMATION
  Report Type: 
  Country: None (occurrence: None)
  Receive Date: 20120321
  Receipt Date: 20120314
  Transmission Date: 20120608
  Serious: No
  Sender: FDA-Public Use
  Company Number: US-PFIZER INC-2012061094

PATIENT
  Sex: Female
  Weight: 59.41 kg

DRUGS (3)
  1. GEODON [Suspect]
     Indication: BIPOLAR DISORDER
     Dosage: 40 MG, DAILY
     Route: 048
     Dates: start: 20060101
  2. GEODON [Suspect]
     Dosage: 40 MG, DAILY
     Route: 048
     Dates: start: 20110101
  3. DEPAKOTE [Concomitant]
     Indication: BIPOLAR DISORDER
     Dosage: 500 MG, DAILY
     Route: 048

REACTIONS (4)
  - NIGHT SWEATS [None]
  - VOMITING [None]
  - ABNORMAL DREAMS [None]
  - COUGH [None]
